FAERS Safety Report 10744936 (Version 1)
Quarter: 2015Q1

REPORT INFORMATION
  Report Type: Spontaneous
  Country: IT (occurrence: IT)
  Receive Date: 20150128
  Receipt Date: 20150128
  Transmission Date: 20150721
  Serious: Yes (Hospitalization)
  Sender: FDA-Public Use
  Company Number: IT-TEVA-536886ISR

PATIENT
  Age: 81 Year
  Sex: Male

DRUGS (6)
  1. TAUXIB - COMPRESSE RIVESTITE CON FILM - ADDENDA PHARMA S.R.L . [Interacting]
     Active Substance: ETORICOXIB
     Indication: PRODUCT USED FOR UNKNOWN INDICATION
     Dosage: 1 DF DAILY
     Route: 048
     Dates: start: 20150103, end: 20150118
  2. LANOXIN [Concomitant]
     Active Substance: DIGOXIN
     Indication: PRODUCT USED FOR UNKNOWN INDICATION
  3. OLPRESS - COMPRESSE RIVESTITE CON FILM DA 10 MG [Concomitant]
     Indication: PRODUCT USED FOR UNKNOWN INDICATION
  4. TICLOPIDINE [Suspect]
     Active Substance: TICLOPIDINE
     Indication: PRODUCT USED FOR UNKNOWN INDICATION
     Dosage: 250 MG DAILY
     Route: 048
     Dates: start: 20130101, end: 20150118
  5. BIFRIL - COMPRESSE RIVESTITE CON FILM 7.5 MG [Concomitant]
     Indication: PRODUCT USED FOR UNKNOWN INDICATION
  6. DELTACORTENE - 5 MG COMPRESSE [Concomitant]
     Indication: PRODUCT USED FOR UNKNOWN INDICATION

REACTIONS (3)
  - Drug interaction [Recovering/Resolving]
  - Anaemia [Recovering/Resolving]
  - Melaena [Recovering/Resolving]

NARRATIVE: CASE EVENT DATE: 20150118
